APPROVED DRUG PRODUCT: FESOTERODINE FUMARATE
Active Ingredient: FESOTERODINE FUMARATE
Strength: 8MG
Dosage Form/Route: TABLET, EXTENDED RELEASE;ORAL
Application: A204946 | Product #002 | TE Code: AB
Applicant: ZYDUS PHARMACEUTICALS USA INC
Approved: Oct 3, 2017 | RLD: No | RS: No | Type: RX